FAERS Safety Report 11020030 (Version 2)
Quarter: 2015Q2

REPORT INFORMATION
  Report Type: Spontaneous
  Country: US (occurrence: US)
  Receive Date: 20150412
  Receipt Date: 20150525
  Transmission Date: 20150821
  Serious: No
  Sender: FDA-Public Use
  Company Number: US-JNJFOC-20130707684

PATIENT
  Age: 69 Year
  Sex: Female
  Weight: 45.36 kg

DRUGS (4)
  1. XOPENEX [Concomitant]
     Active Substance: LEVALBUTEROL HYDROCHLORIDE
     Indication: PNEUMONIA
     Route: 065
     Dates: start: 2013
  2. LEVAQUIN [Suspect]
     Active Substance: LEVOFLOXACIN
     Indication: PNEUMONIA
     Route: 048
     Dates: start: 20130610, end: 20130620
  3. ZOLPIDEM [Concomitant]
     Active Substance: ZOLPIDEM\ZOLPIDEM TARTRATE
     Indication: PNEUMONIA
     Route: 065
     Dates: start: 2013
  4. ALBUTEROL. [Concomitant]
     Active Substance: ALBUTEROL
     Indication: PNEUMONIA
     Route: 065
     Dates: start: 2013

REACTIONS (6)
  - Photosensitivity reaction [Not Recovered/Not Resolved]
  - Dysgraphia [Not Recovered/Not Resolved]
  - Hypoaesthesia [Not Recovered/Not Resolved]
  - Asthenia [Not Recovered/Not Resolved]
  - Purpura [Not Recovered/Not Resolved]
  - Fall [Recovered/Resolved]

NARRATIVE: CASE EVENT DATE: 201307
